FAERS Safety Report 7920725-0 (Version None)
Quarter: 2011Q4

REPORT INFORMATION
  Report Type: 
  Country: None (occurrence: None)
  Receive Date: 20111117
  Receipt Date: 20111031
  Transmission Date: 20120403
  Serious: Yes (Other)
  Sender: FDA-Public Use
  Company Number: US-ROCHE-1013236

PATIENT
  Age: 70 Year
  Sex: Male

DRUGS (8)
  1. ATORVASTATIN [Concomitant]
  2. LUCENTIS [Suspect]
     Indication: AGE-RELATED MACULAR DEGENERATION
     Dosage: RIGHT EYE
     Route: 050
     Dates: start: 20110706
  3. AMLODIPINE [Concomitant]
  4. ACETYLSALICYLIC ACID SRT [Concomitant]
  5. CLONIDINE [Concomitant]
  6. VISUDYNE [Suspect]
     Indication: AGE-RELATED MACULAR DEGENERATION
     Route: 042
     Dates: start: 20110713
  7. LISINOPRIL [Concomitant]
  8. LOSARTAN [Concomitant]

REACTIONS (6)
  - PUPILLARY REFLEX IMPAIRED [None]
  - SCOTOMA [None]
  - VISION BLURRED [None]
  - BLOOD PRESSURE INCREASED [None]
  - VISUAL ACUITY REDUCED [None]
  - RETINAL ARTERY OCCLUSION [None]
